FAERS Safety Report 7854741-4 (Version None)
Quarter: 2011Q4

REPORT INFORMATION
  Report Type: 
  Country: None (occurrence: None)
  Receive Date: 20111026
  Receipt Date: 20110822
  Transmission Date: 20120403
  Serious: No
  Sender: FDA-Public Use
  Company Number: US-MUTUAL PHARMACEUTICAL COMPANY, INC.-CLCY20110110

PATIENT
  Sex: Male
  Weight: 71.278 kg

DRUGS (7)
  1. COLCRYS [Suspect]
     Route: 048
     Dates: start: 20110901
  2. ZOCOR [Concomitant]
     Indication: CARDIOVASCULAR EVENT PROPHYLAXIS
     Route: 048
  3. FOLIC ACID [Concomitant]
     Indication: VITAMIN SUPPLEMENTATION
     Route: 048
  4. COLCRYS [Suspect]
     Indication: GOUT
     Route: 048
     Dates: start: 20110715, end: 20110831
  5. PLAVIX [Concomitant]
     Indication: STENT PLACEMENT
     Route: 065
  6. PROTONIX [Concomitant]
     Indication: REFLUX LARYNGITIS
     Route: 048
  7. ALLOPURINOL [Concomitant]
     Indication: GOUT
     Route: 048
     Dates: start: 20110906

REACTIONS (2)
  - ABDOMINAL PAIN UPPER [None]
  - BLOOD CREATININE INCREASED [None]
